FAERS Safety Report 21657756 (Version 2)
Quarter: 2023Q4

REPORT INFORMATION
  Report Type: Spontaneous
  Country: BA (occurrence: BA)
  Receive Date: 20221129
  Receipt Date: 20231110
  Transmission Date: 20240110
  Serious: Yes (Death, Life-Threatening, Hospitalization, Other)
  Sender: FDA-Public Use
  Company Number: BA-MYLANLABS-2022M1131895

PATIENT
  Age: 58 Year
  Sex: Male

DRUGS (1)
  1. IBUPROFEN [Suspect]
     Active Substance: IBUPROFEN
     Indication: Headache
     Dosage: UNK
     Route: 048

REACTIONS (9)
  - Toxic epidermal necrolysis [Fatal]
  - Septic shock [Fatal]
  - Respiratory failure [Fatal]
  - General physical health deterioration [Unknown]
  - Inflammatory marker increased [Unknown]
  - Conjunctival hyperaemia [Unknown]
  - Mouth injury [Unknown]
  - Dermatitis bullous [Unknown]
  - Rash maculo-papular [Unknown]
